FAERS Safety Report 6955940-6 (Version None)
Quarter: 2010Q3

REPORT INFORMATION
  Report Type: 
  Country: None (occurrence: None)
  Receive Date: 20100830
  Receipt Date: 20100825
  Transmission Date: 20110219
  Serious: Yes (Hospitalization)
  Sender: FDA-Public Use
  Company Number: CH-MERCK-1008USA03494

PATIENT
  Age: 87 Year
  Sex: Female

DRUGS (4)
  1. MODURETIC 5-50 [Suspect]
     Route: 048
     Dates: end: 20100330
  2. MEMANTINE HCL [Suspect]
     Indication: DEMENTIA ALZHEIMER'S TYPE
     Route: 048
     Dates: end: 20100330
  3. CALCIMAGON D3 [Concomitant]
     Route: 048
  4. ELTROXIN [Concomitant]
     Route: 048

REACTIONS (2)
  - CONFUSIONAL STATE [None]
  - HYPOKINESIA [None]
